FAERS Safety Report 14569568 (Version 1)
Quarter: 2018Q1

REPORT INFORMATION
  Report Type: Spontaneous
  Country: AU (occurrence: AU)
  Receive Date: 20180224
  Receipt Date: 20180224
  Transmission Date: 20180509
  Serious: Yes (Hospitalization, Other)
  Sender: FDA-Public Use
  Company Number: AU-INDICUS PHARMA-000505

PATIENT
  Age: 44 Year
  Sex: Female

DRUGS (8)
  1. AMLODIPINE [Concomitant]
     Active Substance: AMLODIPINE BESYLATE
  2. LEVOTHYROXINE. [Concomitant]
     Active Substance: LEVOTHYROXINE
  3. METFORMIN [Suspect]
     Active Substance: METFORMIN HYDROCHLORIDE
     Indication: TYPE 2 DIABETES MELLITUS
  4. ROSUVASTATIN/ROSUVASTATIN CALCIUM [Concomitant]
  5. MOXONIDINE [Concomitant]
     Active Substance: MOXONIDINE
  6. TELMISARTAN. [Concomitant]
     Active Substance: TELMISARTAN
  7. ACETYLSALICYLIC ACID [Concomitant]
     Active Substance: ASPIRIN
  8. PRAZOSIN. [Concomitant]
     Active Substance: PRAZOSIN

REACTIONS (2)
  - Vitamin B1 decreased [Unknown]
  - Encephalopathy [Recovered/Resolved]
